FAERS Safety Report 6395620-1 (Version None)
Quarter: 2009Q4

REPORT INFORMATION
  Report Type: 
  Country: None (occurrence: None)
  Receive Date: 20091006
  Receipt Date: 20090921
  Transmission Date: 20100525
  Serious: Yes (Other)
  Sender: FDA-Public Use
  Company Number: 231716K09USA

PATIENT
  Age: 47 Year
  Sex: Female

DRUGS (7)
  1. REBIF [Suspect]
     Indication: MULTIPLE SCLEROSIS
     Dosage: 44 MCG, 3 IN 1 WEEKS, SUBCUTANEOUS
     Route: 058
     Dates: start: 20071231
  2. NORCO [Concomitant]
  3. FLUOXETINE (FLUOXETINE /00724401/) [Concomitant]
  4. TOPAMAX [Concomitant]
  5. UNSPECIFIED PAIN MEDICATION [Concomitant]
  6. VITAMIN B12 (HYDROXOCOBALAMIN) [Concomitant]
  7. PROVIGIL [Concomitant]

REACTIONS (3)
  - ELECTROENCEPHALOGRAM ABNORMAL [None]
  - MIDDLE INSOMNIA [None]
  - NECK INJURY [None]
